FAERS Safety Report 9433743 (Version 2)
Quarter: 2013Q3

REPORT INFORMATION
  Report Type: Spontaneous
  Country: US (occurrence: None)
  Receive Date: 20130729
  Receipt Date: 20130826
  Transmission Date: 20140515
  Serious: No
  Sender: FDA-Public Use
  Company Number: IMP_06756_2013

PATIENT
  Sex: Female

DRUGS (1)
  1. CARBIDOPA-LEVODOPA-B [Suspect]
     Indication: PRODUCT USED FOR UNKNOWN INDICATION
     Dosage: DF

REACTIONS (1)
  - Parkinson^s disease [None]
